FAERS Safety Report 23755782 (Version 1)
Quarter: 2024Q2

REPORT INFORMATION
  Report Type: Spontaneous
  Country: US (occurrence: None)
  Receive Date: 20240417
  Receipt Date: 20240417
  Transmission Date: 20240716
  Serious: Yes (Hospitalization)
  Sender: FDA-Public Use
  Company Number: None

PATIENT
  Age: 80 Year
  Sex: Female

DRUGS (14)
  1. AMBRISENTAN [Suspect]
     Active Substance: AMBRISENTAN
     Indication: Pulmonary hypertension
     Dosage: 5MG QD ORAL
     Route: 048
     Dates: start: 20211025
  2. SILDENAFIL [Concomitant]
     Active Substance: SILDENAFIL
  3. ALBUTEROL SULFATE [Concomitant]
     Active Substance: ALBUTEROL SULFATE
  4. ERYTHROPOIETIN [Concomitant]
     Active Substance: ERYTHROPOIETIN
  5. ATORVASTATIN [Concomitant]
     Active Substance: ATORVASTATIN
  6. CARVEDILOL [Concomitant]
     Active Substance: CARVEDILOL
  7. MYCOPHENOLIC ACID [Concomitant]
     Active Substance: MYCOPHENOLIC ACID
  8. FAMOTIDINE [Concomitant]
     Active Substance: FAMOTIDINE
  9. RIVAROXABAN [Concomitant]
     Active Substance: RIVAROXABAN
  10. PREDNISONE [Concomitant]
     Active Substance: PREDNISONE
  11. folic acie [Concomitant]
  12. FUROSEMIDE [Concomitant]
     Active Substance: FUROSEMIDE
  13. ASCORBIC ACID\IRON [Concomitant]
     Active Substance: ASCORBIC ACID\IRON
  14. vitain B-12 [Concomitant]

REACTIONS (3)
  - Rectal haemorrhage [None]
  - Haemorrhoids [None]
  - Large intestine polyp [None]

NARRATIVE: CASE EVENT DATE: 20240406
